FAERS Safety Report 23990806 (Version 1)
Quarter: 2024Q2

REPORT INFORMATION
  Report Type: Spontaneous
  Country: US (occurrence: US)
  Receive Date: 20240619
  Receipt Date: 20240619
  Transmission Date: 20240715
  Serious: No
  Sender: FDA-Public Use
  Company Number: US-TEVA-VS-3208100

PATIENT
  Age: 54 Year
  Sex: Female
  Weight: 80.74 kg

DRUGS (19)
  1. AJOVY [Suspect]
     Active Substance: FREMANEZUMAB-VFRM
     Indication: Migraine
     Dosage: 225/1.5 MG/ML
     Route: 065
     Dates: start: 20240606
  2. AJOVY [Suspect]
     Active Substance: FREMANEZUMAB-VFRM
  3. ZOFRAN [Concomitant]
     Active Substance: ONDANSETRON HYDROCHLORIDE
  4. CELEXA [Concomitant]
     Active Substance: CITALOPRAM HYDROBROMIDE
  5. CYMBALTA [Concomitant]
     Active Substance: DULOXETINE HYDROCHLORIDE
  6. NEXIUM [Concomitant]
     Active Substance: ESOMEPRAZOLE MAGNESIUM
  7. JARDIANCE [Concomitant]
     Active Substance: EMPAGLIFLOZIN
  8. LEVOTHYROXINE [Concomitant]
     Active Substance: LEVOTHYROXINE\LEVOTHYROXINE SODIUM
  9. ASPIRIN [Concomitant]
     Active Substance: ASPIRIN
  10. FAMOTIDINE [Concomitant]
     Active Substance: FAMOTIDINE
  11. FEXOFENADINE [Concomitant]
     Active Substance: FEXOFENADINE HYDROCHLORIDE
  12. MOUNJARO [Concomitant]
     Active Substance: TIRZEPATIDE
  13. REPATHA [Concomitant]
     Active Substance: EVOLOCUMAB
  14. VITAMIN B COMPLEX [Concomitant]
     Active Substance: CYANOCOBALAMIN\DEXPANTHENOL\NIACINAMIDE\PYRIDOXINE HYDROCHLORIDE\RIBOFLAVIN 5^-PHOSPHATE SODIUM\THIA
  15. METOPROLOL [Concomitant]
     Active Substance: METOPROLOL
  16. Nitro-time CR [Concomitant]
  17. VITAMIN D [Concomitant]
     Active Substance: VITAMIN D NOS
  18. QULIPTA [Concomitant]
     Active Substance: ATOGEPANT
  19. TYLENOL [Concomitant]
     Active Substance: ACETAMINOPHEN

REACTIONS (1)
  - Pruritus [Not Recovered/Not Resolved]

NARRATIVE: CASE EVENT DATE: 20240606
